FAERS Safety Report 9287077 (Version 1)
Quarter: 2013Q2

REPORT INFORMATION
  Report Type: Spontaneous
  Country: US (occurrence: None)
  Receive Date: 20130508
  Receipt Date: 20130508
  Transmission Date: 20140414
  Serious: Yes (Hospitalization)
  Sender: FDA-Public Use
  Company Number: 2013P1005071

PATIENT
  Age: 29 Year
  Sex: Male

DRUGS (1)
  1. INFUMORPH [Suspect]
     Indication: CANCER PAIN
     Route: 055
     Dates: start: 20130305, end: 20130412

REACTIONS (4)
  - Drug ineffective [None]
  - Pain [None]
  - Testicular cancer metastatic [None]
  - Malignant neoplasm progression [None]
